FAERS Safety Report 7783502-X (Version None)
Quarter: 2011Q3

REPORT INFORMATION
  Report Type: 
  Country: None (occurrence: None)
  Receive Date: 20110928
  Receipt Date: 20110921
  Transmission Date: 20111222
  Serious: Yes (Hospitalization)
  Sender: FDA-Public Use
  Company Number: US-ELI_LILLY_AND_COMPANY-US201109006210

PATIENT
  Sex: Male
  Weight: 90.068 kg

DRUGS (3)
  1. GEMCITABINE HYDROCHLORIDE [Suspect]
     Dosage: 1598 MG, WEEKLY (1/W)
     Dates: start: 20110711
  2. ONDANSETRON [Concomitant]
     Dosage: UNK
     Dates: start: 20110613
  3. GEMCITABINE HYDROCHLORIDE [Suspect]
     Indication: PANCREATIC CARCINOMA METASTATIC
     Dosage: 2140 MG, WEEKLY (1/W)
     Route: 042
     Dates: start: 20110627, end: 20110627

REACTIONS (2)
  - NAUSEA [None]
  - DEHYDRATION [None]
